FAERS Safety Report 18936029 (Version 2)
Quarter: 2022Q1

REPORT INFORMATION
  Report Type: Spontaneous
  Country: GB (occurrence: GB)
  Receive Date: 20210225
  Receipt Date: 20220304
  Transmission Date: 20220424
  Serious: Yes (Other)
  Sender: FDA-Public Use
  Company Number: GB-TEVA-2021-GB-1882251

PATIENT
  Age: 70 Year
  Sex: Female

DRUGS (1)
  1. ALBUTEROL [Suspect]
     Active Substance: ALBUTEROL
     Indication: Chronic obstructive pulmonary disease
     Dosage: THE WOMAN WAS ON A SALBUTAMOL INHALER/ NEBULISER
     Route: 055

REACTIONS (1)
  - Neuromyotonia [Recovering/Resolving]
